FAERS Safety Report 7986604-8 (Version None)
Quarter: 2011Q4

REPORT INFORMATION
  Report Type: 
  Country: None (occurrence: None)
  Receive Date: 20111216
  Receipt Date: 20110803
  Transmission Date: 20120403
  Serious: No
  Sender: FDA-Public Use
  Company Number: US-BRISTOL-MYERS SQUIBB COMPANY-15945678

PATIENT
  Age: 92 Year
  Sex: Male
  Weight: 78 kg

DRUGS (3)
  1. ABILIFY [Suspect]
     Dates: end: 20110726
  2. IRON SUPPLEMENT [Concomitant]
  3. XANAX [Concomitant]

REACTIONS (4)
  - DROOLING [None]
  - DISORIENTATION [None]
  - DYSARTHRIA [None]
  - FALL [None]
